FAERS Safety Report 7407054-9 (Version None)
Quarter: 2011Q2

REPORT INFORMATION
  Report Type: 
  Country: None (occurrence: None)
  Receive Date: 20110411
  Receipt Date: 20110401
  Transmission Date: 20111010
  Serious: Yes (Hospitalization)
  Sender: FDA-Public Use
  Company Number: DE-ROCHE-752822

PATIENT
  Sex: Male
  Weight: 58 kg

DRUGS (7)
  1. CAPECITABINE [Suspect]
     Indication: RECTAL CANCER
     Dosage: SCHEDULE: 825 MG.M2 PO BID D1-33 W/O WEEKENDS+ OPTIONAL BOOST.
     Route: 048
     Dates: start: 20091014
  2. ACC LONG [Concomitant]
     Indication: COUGH
     Dosage: DOSE: 1X1.
     Dates: start: 20091108, end: 20091117
  3. KALIUM NATRIUM TARTARICUM [Concomitant]
     Dosage: DOSE:3X1
     Dates: start: 20091111, end: 20091116
  4. CAPECITABINE [Suspect]
     Dosage: DOSE:3 TABLETS
     Route: 048
     Dates: start: 20091110
  5. IMODIUM [Concomitant]
     Dosage: DOSE: 4X1
     Dates: start: 20091108, end: 20091116
  6. CALCIUM [Concomitant]
     Route: 048
     Dates: start: 20091111, end: 20091118
  7. OXALIPLATIN [Suspect]
     Indication: RECTAL CANCER
     Dosage: UNIT ENTERED AS PER PROTOCOL. LAST DOSE PRIOR TO SAE ON 11 NOVEMBER 2009.
     Route: 042
     Dates: start: 20091014

REACTIONS (4)
  - VERTIGO [None]
  - DEHYDRATION [None]
  - VOMITING [None]
  - GENERAL PHYSICAL HEALTH DETERIORATION [None]
